FAERS Safety Report 12701069 (Version 1)
Quarter: 2016Q3

REPORT INFORMATION
  Report Type: Spontaneous
  Country: US (occurrence: None)
  Receive Date: 20160830
  Receipt Date: 20160830
  Transmission Date: 20161109
  Serious: Yes (Other)
  Sender: FDA-Public Use
  Company Number: None

PATIENT
  Age: 58 Year
  Sex: Female
  Weight: 86.18 kg

DRUGS (3)
  1. PACLITAXEL. [Suspect]
     Active Substance: PACLITAXEL
     Indication: NEOPLASM MALIGNANT
     Route: 042
     Dates: start: 20160818, end: 20160818
  2. PORT [Concomitant]
  3. CARBOPLATIN. [Suspect]
     Active Substance: CARBOPLATIN

REACTIONS (7)
  - Dizziness [None]
  - Electric shock [None]
  - Chills [None]
  - Pain [None]
  - Presyncope [None]
  - Pain in extremity [None]
  - Dyspnoea [None]

NARRATIVE: CASE EVENT DATE: 20160822
